FAERS Safety Report 7877526 (Version 2)
Quarter: 2014Q3

REPORT INFORMATION
  Report Type: Spontaneous
  Country: GB (occurrence: GB)
  Receive Date: 20110330
  Receipt Date: 20140910
  Transmission Date: 20150326
  Serious: Yes (Other)
  Sender: FDA-Public Use
  Company Number: GB-SANOFI-AVENTIS-2011SA008898

PATIENT
  Age: 81 Year
  Sex: Male

DRUGS (5)
  1. MULTAQ [Suspect]
     Active Substance: DRONEDARONE
     Indication: ATRIAL FIBRILLATION
     Dosage: ABOUT 4 YEARS AGO
     Route: 048
     Dates: start: 201009
  2. SLOZEM [Concomitant]
     Active Substance: DILTIAZEM
  3. CANDESARTAN [Concomitant]
     Active Substance: CANDESARTAN
  4. SIMVASTATIN. [Concomitant]
     Active Substance: SIMVASTATIN
  5. SIMVASTATIN. [Concomitant]
     Active Substance: SIMVASTATIN

REACTIONS (3)
  - Alanine aminotransferase increased [Recovered/Resolved]
  - Unevaluable event [Unknown]
  - Atrial fibrillation [Recovered/Resolved]

NARRATIVE: CASE EVENT DATE: 2011
